FAERS Safety Report 9034448 (Version 1)
Quarter: 2013Q1

REPORT INFORMATION
  Report Type: Spontaneous
  Country: DK (occurrence: None)
  Receive Date: 20130111
  Receipt Date: 20130111
  Transmission Date: 20140127
  Serious: Yes (Other)
  Sender: FDA-Public Use
  Company Number: 2013MA000225

PATIENT
  Sex: Male

DRUGS (1)
  1. DOXYCYCLINE HYCLATE DELAYED-RELEASE TABLETS 100MG (BASE) (AELLC) (DOXYCYCLINE) [Suspect]
     Indication: ANTIBIOTIC THERAPY
     Route: 048

REACTIONS (1)
  - Oesophageal ulcer [None]
